FAERS Safety Report 23514990 (Version 1)
Quarter: 2024Q1

REPORT INFORMATION
  Report Type: Spontaneous
  Country: US (occurrence: US)
  Receive Date: 20240212
  Receipt Date: 20240212
  Transmission Date: 20240410
  Serious: No
  Sender: FDA-Public Use
  Company Number: US-HALEON-USCH2024007586

PATIENT
  Age: 68 Year

DRUGS (1)
  1. VOLTAREN ARTHRITIS PAIN [Suspect]
     Active Substance: DICLOFENAC SODIUM
     Indication: Product used for unknown indication
     Dosage: UNK, UNK, BID
     Dates: start: 20240131, end: 20240208

REACTIONS (3)
  - Drug ineffective [Unknown]
  - Inappropriate schedule of product administration [Unknown]
  - Product administered at inappropriate site [Unknown]
